FAERS Safety Report 7680729-2 (Version None)
Quarter: 2011Q3

REPORT INFORMATION
  Report Type: 
  Country: None (occurrence: None)
  Receive Date: 20110812
  Receipt Date: 20110801
  Transmission Date: 20111222
  Serious: Yes (Other)
  Sender: FDA-Public Use
  Company Number: US-MYLANLABS-2011S1016148

PATIENT
  Sex: Male

DRUGS (4)
  1. FENTANYL-100 [Suspect]
     Indication: PAIN
     Dosage: Q72H
     Route: 062
     Dates: start: 20101201
  2. FENTANYL-100 [Suspect]
     Dosage: Q72H
     Route: 062
  3. FENTANYL-100 [Suspect]
     Dosage: Q72H
     Route: 062
     Dates: start: 20010101, end: 20101101
  4. FENTANYL-100 [Suspect]
     Dosage: Q72H
     Route: 062
     Dates: start: 20010101, end: 20101101

REACTIONS (3)
  - DRUG EFFECT DECREASED [None]
  - SUICIDAL IDEATION [None]
  - PAIN [None]
